FAERS Safety Report 6928081 (Version 3)
Quarter: 2013Q1

REPORT INFORMATION
  Report Type: Report from Study
  Country: US (occurrence: US)
  Receive Date: 20090305
  Receipt Date: 20130121
  Transmission Date: 20140127
  Serious: Yes (Hospitalization)
  Sender: FDA-Public Use
  Company Number: PHHO2009US02931

PATIENT
  Sex: Female
  Weight: 84.5 kg

DRUGS (3)
  1. ALISKIREN [Suspect]
     Indication: ESSENTIAL HYPERTENSION
     Dosage: 300 MG, QD
     Route: 048
     Dates: start: 20080815, end: 20090227
  2. HYDROCHLOROTHIAZIDE [Suspect]
     Indication: ESSENTIAL HYPERTENSION
     Dosage: 25 MG, QD
     Route: 048
     Dates: start: 20080815, end: 20090122
  3. AMLODIPINE [Suspect]
     Indication: ESSENTIAL HYPERTENSION
     Dosage: 5 MG, BID
     Route: 048
     Dates: start: 20080815, end: 20090227

REACTIONS (5)
  - Chest pain [Recovered/Resolved]
  - Renal failure [Recovered/Resolved]
  - Sinusitis [Recovered/Resolved]
  - Headache [Recovered/Resolved]
  - Protein total abnormal [Recovered/Resolved]
